FAERS Safety Report 4614980-2 (Version None)
Quarter: 2005Q1

REPORT INFORMATION
  Report Type: 
  Country: None (occurrence: None)
  Receive Date: 20050315
  Receipt Date: 20050304
  Transmission Date: 20050727
  Serious: Yes (Other)
  Sender: FDA-Public Use
  Company Number: 2005041854

PATIENT
  Age: 79 Year
  Sex: Female

DRUGS (5)
  1. NEURONTIN [Suspect]
     Indication: PAIN
     Dosage: 200 MG (200 MG, 1 IN 1 D)
  2. GABAPENTIN [Suspect]
     Indication: PAIN
     Dosage: 200 MG (200 MG, 1 IN 1 D),ORAL
     Route: 048
  3. DIAZEPAM [Concomitant]
  4. HYDROCHLOROTHIAZIDE [Concomitant]
  5. ALL OTHER THERAPEUTIC PRODUCTS (ALL OTHER THERAPEUTIC PRODUCTS) [Concomitant]

REACTIONS (4)
  - DIFFICULTY IN WALKING [None]
  - DIZZINESS [None]
  - IMPAIRED DRIVING ABILITY [None]
  - PHARMACEUTICAL PRODUCT COMPLAINT [None]
